FAERS Safety Report 8235437-6 (Version None)
Quarter: 2012Q1

REPORT INFORMATION
  Report Type: 
  Country: None (occurrence: None)
  Receive Date: 20120326
  Receipt Date: 20120316
  Transmission Date: 20120608
  Serious: Yes (Other)
  Sender: FDA-Public Use
  Company Number: US-VERTEX PHARMACEUTICALS INC.-AE-2012-003899

PATIENT
  Sex: Male

DRUGS (9)
  1. SPIRONOLACTONE [Concomitant]
  2. LASIX [Concomitant]
  3. OMEPRAZOLE [Concomitant]
  4. INFERGEN [Concomitant]
     Indication: HEPATITIS C
     Route: 058
     Dates: start: 20120201
  5. TRAZODONE HCL [Concomitant]
  6. FOLIC ACID [Concomitant]
  7. INCIVEK [Suspect]
     Indication: HEPATITIS C
     Route: 048
  8. RIBAVIRIN [Concomitant]
     Indication: HEPATITIS C
     Route: 048
     Dates: start: 20120201
  9. LACTULOSE [Concomitant]

REACTIONS (1)
  - ENCEPHALOPATHY [None]
